FAERS Safety Report 11401867 (Version 1)
Quarter: 2015Q3

REPORT INFORMATION
  Report Type: Spontaneous
  Country: FR (occurrence: FR)
  Receive Date: 20150821
  Receipt Date: 20150821
  Transmission Date: 20151125
  Serious: Yes (Life-Threatening, Hospitalization, Other)
  Sender: FDA-Public Use
  Company Number: FR-ABBVIE-15K-056-1447550-00

PATIENT
  Age: 17 Year
  Sex: Female

DRUGS (3)
  1. HUMIRA [Suspect]
     Active Substance: ADALIMUMAB
     Indication: PRODUCT USED FOR UNKNOWN INDICATION
     Route: 065
     Dates: start: 201210, end: 201409
  2. IMUREL [Concomitant]
     Active Substance: AZATHIOPRINE SODIUM
     Dates: start: 2015
  3. IMUREL [Concomitant]
     Active Substance: AZATHIOPRINE SODIUM
     Indication: PRODUCT USED FOR UNKNOWN INDICATION
     Dates: start: 201204, end: 201409

REACTIONS (8)
  - Suicide attempt [Recovered/Resolved]
  - Suicide attempt [Unknown]
  - Major depression [Unknown]
  - Weight decreased [Unknown]
  - Self-induced vomiting [Unknown]
  - Eating disorder [Unknown]
  - Drug dependence [Unknown]
  - Crohn^s disease [Unknown]

NARRATIVE: CASE EVENT DATE: 201210
